FAERS Safety Report 5982884-9 (Version None)
Quarter: 2008Q4

REPORT INFORMATION
  Report Type: 
  Country: None (occurrence: None)
  Receive Date: 20081208
  Receipt Date: 20080303
  Transmission Date: 20090506
  Serious: No
  Sender: FDA-Public Use
  Company Number: US-AMGEN-KDL268028

PATIENT
  Sex: Female

DRUGS (2)
  1. ENBREL [Suspect]
     Indication: PSORIASIS
     Route: 058
     Dates: start: 20070815
  2. ENBREL [Suspect]
     Indication: OSTEOARTHRITIS

REACTIONS (11)
  - ANAEMIA [None]
  - ARTHRALGIA [None]
  - ASTHMA [None]
  - DECREASED APPETITE [None]
  - DRY EYE [None]
  - EYE INFECTION [None]
  - FATIGUE [None]
  - NASOPHARYNGITIS [None]
  - NODULE ON EXTREMITY [None]
  - PARAESTHESIA [None]
  - PRURITUS [None]
